FAERS Safety Report 15792818 (Version 2)
Quarter: 2019Q2

REPORT INFORMATION
  Report Type: Report from Study
  Country: CA (occurrence: CA)
  Receive Date: 20190107
  Receipt Date: 20190424
  Transmission Date: 20190711
  Serious: Yes (Death, Hospitalization)
  Sender: FDA-Public Use
  Company Number: CA-TEVA-2019-CA-994966

PATIENT
  Age: 83 Year
  Sex: Female
  Weight: 53 kg

DRUGS (11)
  1. ECONAZOLE NITRATE/TRIAMCINOLONE ACETONIDE [Concomitant]
     Indication: PRODUCT USED FOR UNKNOWN INDICATION
     Route: 065
  2. PANTOLOC [Concomitant]
     Active Substance: PANTOPRAZOLE SODIUM
     Indication: PRODUCT USED FOR UNKNOWN INDICATION
     Route: 065
  3. SYNTHROID [Concomitant]
     Active Substance: LEVOTHYROXINE SODIUM
     Indication: PRODUCT USED FOR UNKNOWN INDICATION
     Route: 065
  4. DESOXIMETASONE. [Concomitant]
     Active Substance: DESOXIMETASONE
     Indication: PRODUCT USED FOR UNKNOWN INDICATION
     Route: 065
  5. AMINO ACIDS/MINERALSNOS/VITAMINS NOS [Concomitant]
     Indication: PRODUCT USED FOR UNKNOWN INDICATION
     Route: 065
  6. DIOVAN [Suspect]
     Active Substance: VALSARTAN
     Indication: PRODUCT USED FOR UNKNOWN INDICATION
     Route: 065
  7. SANDOSTATIN [Suspect]
     Active Substance: OCTREOTIDE ACETATE
     Route: 030
  8. SANDOSTATIN [Suspect]
     Active Substance: OCTREOTIDE ACETATE
     Indication: CARCINOID TUMOUR
     Route: 030
  9. SANDOSTATIN [Suspect]
     Active Substance: OCTREOTIDE ACETATE
     Dosage: 30MILLIGRAM, 1EVERY 1MONTH
     Route: 030
  10. AMLODIPINE BESILATE [Concomitant]
     Active Substance: AMLODIPINE BESYLATE
     Indication: PRODUCT USED FOR UNKNOWN INDICATION
     Route: 065
  11. DEXAMETHASONE. [Suspect]
     Active Substance: DEXAMETHASONE
     Indication: PRODUCT USED FOR UNKNOWN INDICATION
     Dosage: .5 MILLIGRAM DAILY;
     Route: 065

REACTIONS (26)
  - Drug intolerance [Fatal]
  - Intestinal obstruction [Fatal]
  - Abdominal pain upper [Fatal]
  - Blood pressure increased [Fatal]
  - Drug ineffective [Fatal]
  - Eructation [Fatal]
  - Insomnia [Fatal]
  - Weight decreased [Fatal]
  - Nausea [Fatal]
  - Back pain [Fatal]
  - Blood pressure diastolic decreased [Fatal]
  - Dyspnoea [Fatal]
  - Hunger [Fatal]
  - Agitation [Fatal]
  - Arthralgia [Fatal]
  - Heart rate decreased [Fatal]
  - Blood glucose increased [Fatal]
  - Abdominal distension [Fatal]
  - Abdominal pain [Fatal]
  - Chest discomfort [Fatal]
  - Gait disturbance [Fatal]
  - Gastrointestinal inflammation [Fatal]
  - Vomiting [Fatal]
  - Needle issue [Fatal]
  - Blood pressure systolic increased [Fatal]
  - Fatigue [Fatal]
